FAERS Safety Report 4322417-6 (Version None)
Quarter: 2004Q1

REPORT INFORMATION
  Report Type: 
  Country: None (occurrence: None)
  Receive Date: 20040324
  Receipt Date: 20040317
  Transmission Date: 20041129
  Serious: Yes (Death, Other)
  Sender: FDA-Public Use
  Company Number: PHBS2004CA03799

PATIENT
  Age: 10 Year
  Sex: Female

DRUGS (1)
  1. GLEEVEC [Suspect]
     Indication: ACUTE LYMPHOCYTIC LEUKAEMIA
     Route: 048

REACTIONS (3)
  - DEATH [None]
  - LUNG DISORDER [None]
  - PYREXIA [None]
